FAERS Safety Report 6247350-4 (Version None)
Quarter: 2009Q2

REPORT INFORMATION
  Report Type: 
  Country: None (occurrence: None)
  Receive Date: 20090626
  Receipt Date: 20090618
  Transmission Date: 20091009
  Serious: Yes (Other)
  Sender: FDA-Public Use
  Company Number: B0561041A

PATIENT
  Sex: Male

DRUGS (3)
  1. RELENZA [Suspect]
     Indication: INFLUENZA
     Dosage: 10MG TWICE PER DAY
     Route: 055
     Dates: start: 20090206, end: 20090209
  2. SINGULAIR [Concomitant]
     Indication: ASTHMA
     Dosage: 5MG PER DAY
     Route: 048
     Dates: start: 20050201
  3. SINGULAIR [Concomitant]
     Dosage: 10MG PER DAY
     Route: 048
     Dates: start: 20081001

REACTIONS (4)
  - ASTHMA [None]
  - COUGH [None]
  - DYSPNOEA [None]
  - PRODUCTIVE COUGH [None]
